FAERS Safety Report 26195152 (Version 1)
Quarter: 2025Q4

REPORT INFORMATION
  Report Type: Spontaneous
  Country: US (occurrence: US)
  Receive Date: 20251224
  Receipt Date: 20251224
  Transmission Date: 20260117
  Serious: No
  Sender: ROCHE
  Company Number: US-ROCHE-10000461788

PATIENT
  Sex: Female

DRUGS (9)
  1. XOLAIR [Suspect]
     Active Substance: OMALIZUMAB
     Indication: Product used for unknown indication
  2. JAKAFI [Suspect]
     Active Substance: RUXOLITINIB
     Indication: Thrombocytopenia
     Route: 048
     Dates: start: 202411
  3. JAKAFI [Suspect]
     Active Substance: RUXOLITINIB
     Route: 048
  4. JAKAFI [Suspect]
     Active Substance: RUXOLITINIB
     Route: 048
  5. SODIUM CHLORIDE [Concomitant]
     Active Substance: SODIUM CHLORIDE
  6. EPINEPHRINE [Concomitant]
     Active Substance: EPINEPHRINE
  7. HEPARIN [Concomitant]
     Active Substance: HEPARIN SODIUM
  8. MAGNESIUM SULFATE [Concomitant]
     Active Substance: MAGNESIUM SULFATE
  9. GAMMAGARD [Concomitant]
     Active Substance: HUMAN IMMUNOGLOBULIN G

REACTIONS (6)
  - Rhinitis [Recovering/Resolving]
  - Dyspnoea [Recovering/Resolving]
  - Headache [Unknown]
  - Malaise [Unknown]
  - Illness [Unknown]
  - Product availability issue [Unknown]

NARRATIVE: CASE EVENT DATE: 20241101
